FAERS Safety Report 8431943-X (Version None)
Quarter: 2012Q2

REPORT INFORMATION
  Report Type: 
  Country: None (occurrence: None)
  Receive Date: 20120613
  Receipt Date: 20110418
  Transmission Date: 20120825
  Serious: No
  Sender: FDA-Public Use
  Company Number: US-ASTRAZENECA-2008UW15382

PATIENT
  Age: 66 Year
  Sex: Female

DRUGS (8)
  1. RHINOCORT [Suspect]
     Dosage: 256 MCG TWO SPRAYS TWICE A DAY
     Route: 045
     Dates: start: 20060701, end: 20080701
  2. RHINOCORT [Suspect]
     Indication: ASTHMA
     Dosage: TWO SPRAYS TWICE A DAY
     Route: 045
     Dates: start: 20020101
  3. RHINOCORT [Suspect]
     Dosage: 256 MCG TWO SPRAYS TWICE A DAY
     Route: 045
     Dates: start: 20060701, end: 20080701
  4. RHINOCORT [Suspect]
     Dosage: 256 MCG TWO SPRAYS TWICE A DAY
     Route: 045
     Dates: start: 20080701
  5. BACTROBAN [Concomitant]
  6. RHINOCORT [Suspect]
     Dosage: 256 MCG TWO SPRAYS TWICE A DAY
     Route: 045
     Dates: start: 20080701
  7. ADVAIR DISKUS 100/50 [Concomitant]
  8. RHINOCORT [Suspect]
     Indication: HYPERSENSITIVITY
     Dosage: TWO SPRAYS TWICE A DAY
     Route: 045
     Dates: start: 20020101

REACTIONS (4)
  - COUGH [None]
  - WEIGHT DECREASED [None]
  - EPISTAXIS [None]
  - DRUG DOSE OMISSION [None]
